FAERS Safety Report 9861117 (Version 1)
Quarter: 2014Q1

REPORT INFORMATION
  Report Type: Spontaneous
  Country: US (occurrence: None)
  Receive Date: 20140131
  Receipt Date: 20140131
  Transmission Date: 20141002
  Serious: Yes (Other)
  Sender: FDA-Public Use
  Company Number: None

PATIENT
  Age: 45 Year
  Sex: Female
  Weight: 70.76 kg

DRUGS (1)
  1. CETIRIZINE HYDROCHLORIDE [Suspect]
     Indication: MULTIPLE ALLERGIES
     Dosage: 1 TABLET ONCE DAILY TAKEN BY MOUTH
     Route: 048
     Dates: start: 20130501, end: 20140127

REACTIONS (3)
  - Pruritus [None]
  - Product substitution issue [None]
  - Drug withdrawal syndrome [None]
